FAERS Safety Report 9173661 (Version 1)
Quarter: 2013Q1

REPORT INFORMATION
  Report Type: Spontaneous
  Country: BE (occurrence: None)
  Receive Date: 20130318
  Receipt Date: 20130318
  Transmission Date: 20140127
  Serious: Yes (Other)
  Sender: FDA-Public Use
  Company Number: CIP-2013-00084

PATIENT
  Sex: 0

DRUGS (5)
  1. IRINOTECAN [Suspect]
     Indication: NEOPLASM
     Dosage: 180 MG/M2, REPEATED EVERY TWO WEEKS, INTRAVENOUS
     Route: 042
  2. LEUCOVORIN [Suspect]
     Dosage: 200 MG/M2, REPEATED EVERY TWO WEEKS, INTRAVENOUS
     Route: 042
  3. FLUOROURACIL (FLUOROURACIL) [Suspect]
     Dosage: 400 MG/M2, DAYS 1 AND REPEATED EVERY TWO WEEKS, INTRAVENOUS BOLUS
     Route: 040
  4. AFLIBERCEPT [Suspect]
     Dosage: 2 MG/KG, DAY 1 REPEATED EVERY 2 WEEKS, INTRAVENOUS
     Route: 042
  5. LEUCOVORIN [Suspect]
     Dosage: 100 MG/M2, REPEATED EVERY TWO WEEKS, INTRAVENOUS
     Route: 042

REACTIONS (1)
  - Hypertension [None]
